FAERS Safety Report 24700560 (Version 2)
Quarter: 2024Q4

REPORT INFORMATION
  Report Type: Report from Study
  Country: US (occurrence: US)
  Receive Date: 20241205
  Receipt Date: 20241206
  Transmission Date: 20250114
  Serious: Yes (Congenital Anomaly, Other)
  Sender: GLAXOSMITHKLINE
  Company Number: US-GLAXOSMITHKLINE INC-US2024AMR149610

PATIENT

DRUGS (21)
  1. BELIMUMAB [Suspect]
     Active Substance: BELIMUMAB
     Indication: Systemic lupus erythematosus
     Dosage: 1 DF, MO
     Route: 064
     Dates: start: 20200731, end: 20241010
  2. BELIMUMAB [Suspect]
     Active Substance: BELIMUMAB
     Dosage: 1 DF, MO
     Route: 064
     Dates: end: 20241019
  3. AMLODIPINE BESYLATE [Concomitant]
     Active Substance: AMLODIPINE BESYLATE
     Indication: Raynaud^s phenomenon
     Dosage: 10 MG, QD
     Route: 064
     Dates: start: 20240123, end: 20241019
  4. CALCIUM [Concomitant]
     Active Substance: CALCIUM
     Indication: Routine health maintenance
     Dosage: 1200 MG, QD
     Route: 064
     Dates: start: 20240123, end: 20240801
  5. CYCLOBENZAPRINE [Concomitant]
     Active Substance: CYCLOBENZAPRINE
     Indication: Insomnia
     Dosage: 10 MG, QD
     Route: 064
     Dates: start: 20240123, end: 20241019
  6. DULOXETINE HYDROCHLORIDE [Concomitant]
     Active Substance: DULOXETINE HYDROCHLORIDE
     Indication: Anxiety
     Dosage: 40 MG, QD
     Route: 064
     Dates: start: 20240123, end: 20241019
  7. HIZENTRA [Concomitant]
     Active Substance: HUMAN IMMUNOGLOBULIN G
     Indication: Immunodeficiency
     Dosage: 10 MG, QD
     Route: 064
     Dates: start: 20240123, end: 20241019
  8. LEVOTHYROXINE SODIUM [Concomitant]
     Active Substance: LEVOTHYROXINE SODIUM
     Indication: Pregnancy
     Dosage: 25 UG, QD
     Route: 064
     Dates: start: 20240123, end: 20241019
  9. PEPCID [Concomitant]
     Active Substance: FAMOTIDINE
     Indication: Dyspepsia
     Dosage: 1 DF, QD
     Route: 064
     Dates: start: 20240820, end: 20241019
  10. PFIZER-BIONTECH COVID-19 VACCINE [Concomitant]
     Active Substance: TOZINAMERAN
     Indication: Prophylaxis
     Dosage: 1 DF
     Route: 064
     Dates: start: 20240907
  11. HYDROXYCHLOROQUINE [Concomitant]
     Active Substance: HYDROXYCHLOROQUINE
     Indication: Systemic lupus erythematosus
     Dosage: 400 MG, QD
     Route: 064
     Dates: start: 20240123, end: 20241019
  12. TETANUS TOXOID, REDUCED DIPHTHERIA TOXOID AND ACELLULAR PERTUSSIS VACC [Concomitant]
     Active Substance: TETANUS TOXOID, REDUCED DIPHTHERIA TOXOID AND ACELLULAR PERTUSSIS VACCINE ADSORBED, TDAP
     Indication: Prophylaxis
     Dosage: 1 DF, QD
     Route: 064
     Dates: start: 20240903
  13. TYLENOL [Concomitant]
     Active Substance: ACETAMINOPHEN
     Indication: Migraine
     Dosage: 1 DF, QD
     Route: 064
     Dates: start: 20240123, end: 20240513
  14. TYLENOL [Concomitant]
     Active Substance: ACETAMINOPHEN
     Indication: Arthralgia
     Dosage: 1000 MG, TID
     Route: 064
     Dates: start: 20240916, end: 20241019
  15. VITAMIN B6 [Concomitant]
     Active Substance: PYRIDOXINE HYDROCHLORIDE
     Indication: Nausea
     Dosage: 50 MG, QD
     Route: 064
     Dates: start: 20240123, end: 20240801
  16. VITAMIN D3 [Concomitant]
     Active Substance: CHOLECALCIFEROL
     Indication: Routine health maintenance
     Dosage: 1000 IU, QD
     Route: 064
     Dates: start: 20240123, end: 20241019
  17. ZOFRAN [Concomitant]
     Active Substance: ONDANSETRON HYDROCHLORIDE
     Indication: Nausea
     Dosage: 4 MG, QD
     Route: 064
     Dates: start: 20240301, end: 20240531
  18. ZOFRAN [Concomitant]
     Active Substance: ONDANSETRON HYDROCHLORIDE
     Dosage: 4 MG, 2.5 WEEK
     Route: 064
     Dates: start: 20240601, end: 20240701
  19. ZOFRAN [Concomitant]
     Active Substance: ONDANSETRON HYDROCHLORIDE
     Dosage: 4 MG, 1.5 MONTHLY
     Route: 064
     Dates: start: 20240702
  20. VENOFER [Concomitant]
     Active Substance: IRON SUCROSE
     Indication: Mineral supplementation
     Dosage: 1 DF, WE
     Route: 064
     Dates: start: 20240709, end: 20240807
  21. VENOFER [Concomitant]
     Active Substance: IRON SUCROSE
     Dosage: 1 DF, WE
     Route: 064
     Dates: start: 20240930, end: 20241019

REACTIONS (2)
  - Penoscrotal fusion [Unknown]
  - Foetal exposure during pregnancy [Unknown]

NARRATIVE: CASE EVENT DATE: 20241019
